FAERS Safety Report 11145743 (Version 1)
Quarter: 2015Q2

REPORT INFORMATION
  Report Type: Spontaneous
  Country: CH (occurrence: CH)
  Receive Date: 20150528
  Receipt Date: 20150528
  Transmission Date: 20150821
  Serious: Yes (Other)
  Sender: FDA-Public Use
  Company Number: CH-PFIZER INC-2015172740

PATIENT
  Age: 68 Year
  Sex: Male

DRUGS (9)
  1. ALLOPUR [Suspect]
     Active Substance: ALLOPURINOL
     Dosage: 300 MG, DAILY
     Route: 065
  2. XARELTO [Concomitant]
     Active Substance: RIVAROXABAN
     Dosage: 15 MG, 1X/DAY
  3. ALDACTONE [Suspect]
     Active Substance: SPIRONOLACTONE
     Dosage: 25 MG, DAILY
     Route: 065
  4. KALIUM HAUSMANN EFFERVETTES [Concomitant]
     Dosage: 1 DF, 1X/DAY (30 MMOL)
  5. CORDARONE [Suspect]
     Active Substance: AMIODARONE HYDROCHLORIDE
     Dosage: 200 MG, DAILY
  6. MAGNESIOCARD [Concomitant]
     Active Substance: MAGNESIUM ASPARTATE HYDROCHLORIDE
     Dosage: 1 DF (10 MMOL), 2X/DAY
  7. PRADIF [Concomitant]
     Dosage: 400 ?G, 1X/DAY
  8. RAMIPRIL. [Suspect]
     Active Substance: RAMIPRIL
     Indication: HYPOTENSION
     Dosage: 1.25 MG, DAILY
     Route: 065
  9. TOREM [Suspect]
     Active Substance: TORSEMIDE
     Dosage: 10 MG, DAILY
     Route: 065

REACTIONS (2)
  - Hyponatraemia [Recovering/Resolving]
  - Gynaecomastia [Not Recovered/Not Resolved]

NARRATIVE: CASE EVENT DATE: 20131119
